FAERS Safety Report 15754070 (Version 9)
Quarter: 2025Q4

REPORT INFORMATION
  Report Type: Spontaneous
  Country: EU (occurrence: EU)
  Receive Date: 20181223
  Receipt Date: 20251114
  Transmission Date: 20260118
  Serious: Yes (Death, Hospitalization)
  Sender: BOEHRINGER INGELHEIM
  Company Number: EU-BOEHRINGERINGELHEIM-2018-BI-061157

PATIENT
  Age: 80 Year
  Sex: Male
  Weight: 61 kg

DRUGS (2)
  1. PRAXBIND [Suspect]
     Active Substance: IDARUCIZUMAB
     Indication: Procoagulant therapy
  2. CLARITHROMYCIN [Concomitant]
     Active Substance: CLARITHROMYCIN
     Indication: Pneumonia

REACTIONS (3)
  - Gingival bleeding [Fatal]
  - Gastrointestinal haemorrhage [Fatal]
  - Epistaxis [Fatal]
